FAERS Safety Report 12499842 (Version 1)
Quarter: 2016Q2

REPORT INFORMATION
  Report Type: Spontaneous
  Country: US (occurrence: US)
  Receive Date: 20160627
  Receipt Date: 20160627
  Transmission Date: 20160815
  Serious: Yes (Hospitalization, Other)
  Sender: FDA-Public Use
  Company Number: US-NOVOPROD-497432

PATIENT
  Age: 49 Year
  Sex: Female

DRUGS (1)
  1. NOVOLOG [Suspect]
     Active Substance: INSULIN ASPART
     Indication: DIABETES MELLITUS
     Dosage: UNK
     Route: 058

REACTIONS (9)
  - Pneumothorax [Unknown]
  - Cardiac failure congestive [Unknown]
  - Weight decreased [Unknown]
  - Mobility decreased [Unknown]
  - Wound [Unknown]
  - Blood glucose increased [Unknown]
  - Malaise [Unknown]
  - Diabetic neuropathy [Unknown]
  - Limb injury [Unknown]

NARRATIVE: CASE EVENT DATE: 2003
